FAERS Safety Report 5103154-7 (Version None)
Quarter: 2006Q3

REPORT INFORMATION
  Report Type: 
  Country: None (occurrence: None)
  Receive Date: 20060908
  Receipt Date: 20060825
  Transmission Date: 20061208
  Serious: Yes (Other)
  Sender: FDA-Public Use
  Company Number: B0436704A

PATIENT
  Age: 69 Year
  Sex: Male

DRUGS (3)
  1. PREDNISOLONE [Suspect]
     Indication: CHRONIC OBSTRUCTIVE PULMONARY DISEASE
     Dosage: 10 MG /TWICE PER DAY
  2. CEPHALOZIN SODIUM (GENERIC) (CEFAZOLIN SODIUM) [Suspect]
     Indication: URINARY TRACT INFECTION
     Dosage: 1 GRAM(S) / SEE DOSAGE TEXT / INTRAVENOUS
     Route: 042
  3. GENTAMICIN SULFATE [Concomitant]

REACTIONS (9)
  - AGITATION [None]
  - CEREBRAL ATROPHY [None]
  - DEPRESSED LEVEL OF CONSCIOUSNESS [None]
  - KLEBSIELLA INFECTION [None]
  - MENINGISM [None]
  - MENINGITIS ENTEROCOCCAL [None]
  - PATHOGEN RESISTANCE [None]
  - THROMBOCYTOPENIA [None]
  - URINARY TRACT INFECTION [None]
